FAERS Safety Report 9115050 (Version 1)
Quarter: 2013Q1

REPORT INFORMATION
  Report Type: Spontaneous
  Country: DK (occurrence: None)
  Receive Date: 20130125
  Receipt Date: 20130125
  Transmission Date: 20140127
  Serious: Yes (Other)
  Sender: FDA-Public Use
  Company Number: 2013MA000517

PATIENT
  Age: 64 Year
  Sex: Male

DRUGS (8)
  1. DIAZEPAM TBLETS USP, 10 MG (PUREPAC) (DIAZEPAM) [Suspect]
     Dates: start: 20121227
  2. ACETYLSALICYLIC ACID [Concomitant]
  3. CELECOXIB [Concomitant]
  4. FELODIPINE [Concomitant]
  5. OMEPRAZOLE [Concomitant]
  6. PARACETAMOL [Concomitant]
  7. RAMIPRIL [Concomitant]
  8. TRAMADOL [Concomitant]

REACTIONS (1)
  - Rash pruritic [None]
